FAERS Safety Report 9538599 (Version 1)
Quarter: 2013Q2

REPORT INFORMATION
  Report Type: Spontaneous
  Country: JP (occurrence: None)
  Receive Date: 20130507
  Receipt Date: 20130507
  Transmission Date: 20140414
  Serious: No
  Sender: FDA-Public Use
  Company Number: PHEH2013US001737

PATIENT
  Age: 71 Year
  Sex: Female

DRUGS (1)
  1. AFINITOR (RAD) UNKNOWN [Suspect]
     Dosage: 10 MG, EVERY OTHER DAY, ORAL
     Route: 048

REACTIONS (3)
  - Diarrhoea [None]
  - Weight decreased [None]
  - Decreased appetite [None]
